FAERS Safety Report 19493642 (Version 4)
Quarter: 2021Q4

REPORT INFORMATION
  Report Type: Spontaneous
  Country: US (occurrence: US)
  Receive Date: 20210705
  Receipt Date: 20211222
  Transmission Date: 20220303
  Serious: Yes (Other)
  Sender: FDA-Public Use
  Company Number: US-PFIZER INC-2021766287

PATIENT
  Age: 44 Year
  Sex: Female

DRUGS (5)
  1. IBRANCE [Suspect]
     Active Substance: PALBOCICLIB
     Dosage: 125 MG
     Dates: start: 20210421
  2. IBRANCE [Suspect]
     Active Substance: PALBOCICLIB
     Dosage: 125 MG
     Dates: start: 20210501
  3. IBRANCE [Suspect]
     Active Substance: PALBOCICLIB
     Dosage: 125 MG, (TWO WEEKS OFF)
     Dates: start: 20210630
  4. IBRANCE [Suspect]
     Active Substance: PALBOCICLIB
     Dosage: 100 MG
     Dates: start: 20210406
  5. IBRANCE [Suspect]
     Active Substance: PALBOCICLIB
     Dosage: 100 MG
     Dates: start: 20210401

REACTIONS (19)
  - Leukopenia [Unknown]
  - Neutropenia [Unknown]
  - Hordeolum [Unknown]
  - White blood cell count decreased [Unknown]
  - Fatigue [Unknown]
  - Nausea [Recovered/Resolved]
  - Stomatitis [Recovered/Resolved]
  - Nasal disorder [Recovered/Resolved]
  - Oral disorder [Unknown]
  - Hiccups [Unknown]
  - Hypoaesthesia oral [Unknown]
  - Mucosal pain [Unknown]
  - Anal haemorrhage [Unknown]
  - Anal pruritus [Unknown]
  - Asthenia [Unknown]
  - Mucosal dryness [Unknown]
  - Alopecia [Unknown]
  - Dry eye [Unknown]
  - Visual impairment [Unknown]
